FAERS Safety Report 25254494 (Version 2)
Quarter: 2025Q2

REPORT INFORMATION
  Report Type: Report from Study
  Country: US (occurrence: US)
  Receive Date: 20250430
  Receipt Date: 20250607
  Transmission Date: 20250716
  Serious: Yes (Hospitalization)
  Sender: ABBVIE
  Company Number: US-ABBVIE-6257934

PATIENT
  Age: 52 Year
  Sex: Male

DRUGS (3)
  1. VYALEV [Suspect]
     Active Substance: FOSCARBIDOPA\FOSLEVODOPA
     Indication: Parkinson^s disease
     Route: 058
     Dates: start: 20250328, end: 20250401
  2. AMANTADINE [Concomitant]
     Active Substance: AMANTADINE
     Indication: Product used for unknown indication
  3. ZOLOFT [Concomitant]
     Active Substance: SERTRALINE HYDROCHLORIDE
     Indication: Psychotic disorder

REACTIONS (15)
  - Aggression [Unknown]
  - Psychotic disorder [Recovered/Resolved]
  - Crying [Recovered/Resolved]
  - Inappropriate affect [Recovered/Resolved]
  - Dehydration [Unknown]
  - Seizure like phenomena [Unknown]
  - Hypotension [Unknown]
  - Paranoia [Recovering/Resolving]
  - Urine analysis abnormal [Unknown]
  - Hallucination [Recovering/Resolving]
  - Loss of consciousness [Recovered/Resolved]
  - On and off phenomenon [Not Recovered/Not Resolved]
  - Pulse absent [Unknown]
  - Psychotic disorder [Recovering/Resolving]
  - Psychotic disorder [Recovered/Resolved]

NARRATIVE: CASE EVENT DATE: 20250101
